FAERS Safety Report 15633505 (Version 3)
Quarter: 2018Q4

REPORT INFORMATION
  Report Type: Spontaneous
  Country: US (occurrence: US)
  Receive Date: 20181119
  Receipt Date: 20181207
  Transmission Date: 20190205
  Serious: No
  Sender: FDA-Public Use
  Company Number: US-SA-2018SA313908

PATIENT
  Sex: Female

DRUGS (2)
  1. LANTUS [Suspect]
     Active Substance: INSULIN GLARGINE
     Dosage: 45 U, QD
  2. LANTUS [Suspect]
     Active Substance: INSULIN GLARGINE
     Dosage: 45 UNITS IN THE AM AND 35 UNITS IN THE PM
     Route: 065

REACTIONS (3)
  - Inappropriate schedule of product administration [Unknown]
  - Confusional state [Unknown]
  - Blood glucose abnormal [Unknown]
